FAERS Safety Report 16523142 (Version 1)
Quarter: 2019Q3

REPORT INFORMATION
  Report Type: Spontaneous
  Country: ES (occurrence: ES)
  Receive Date: 20190703
  Receipt Date: 20190703
  Transmission Date: 20191004
  Serious: Yes (Other)
  Sender: FDA-Public Use
  Company Number: ES-ACCORD-136299

PATIENT
  Age: 79 Year
  Sex: Female

DRUGS (6)
  1. TRAZODONE [Suspect]
     Active Substance: TRAZODONE HYDROCHLORIDE
     Indication: ADJUSTMENT DISORDER WITH DEPRESSED MOOD
     Dosage: STRENGTH 100 MG 60 TABLETS
     Route: 048
     Dates: start: 20190311, end: 20190601
  2. ENALAPRIL [Concomitant]
     Active Substance: ENALAPRIL
     Indication: ESSENTIAL HYPERTENSION
     Dosage: STRENGTH 5 MG 60 TABLETS
     Route: 048
     Dates: start: 20180207
  3. BROMAZEPAM [Concomitant]
     Active Substance: BROMAZEPAM
     Indication: INTERVERTEBRAL DISC DISPLACEMENT
     Dosage: STRENGTH 3 MG 30 CAPSULES, IRREGULAR DOSAGE
     Route: 048
     Dates: start: 20170701
  4. EUTIROX [Concomitant]
     Active Substance: LEVOTHYROXINE SODIUM
     Indication: HYPOTHYROIDISM
     Dosage: MICROGRAMS TABLETS, 100 TABLETS
     Route: 048
     Dates: start: 20170325
  5. PREGABALIN. [Concomitant]
     Active Substance: PREGABALIN
     Indication: INTERVERTEBRAL DISC DISPLACEMENT
     Dosage: STRENGTH 75 MG 100 CAPSULES
     Route: 048
     Dates: start: 20180103
  6. ATORVASTATIN [Concomitant]
     Active Substance: ATORVASTATIN
     Indication: HYPERLIPIDAEMIA
     Dosage: STRENGTH 20 MG TABLET
     Route: 048
     Dates: start: 20171227

REACTIONS (3)
  - Balance disorder [Recovered/Resolved]
  - Depressed level of consciousness [Recovered/Resolved]
  - Somnolence [Recovered/Resolved]

NARRATIVE: CASE EVENT DATE: 20190311
